FAERS Safety Report 7339088-7 (Version None)
Quarter: 2011Q1

REPORT INFORMATION
  Report Type: 
  Country: None (occurrence: None)
  Receive Date: 20110228
  Receipt Date: 20110217
  Transmission Date: 20110831
  Serious: Yes (Other)
  Sender: FDA-Public Use
  Company Number: 027344

PATIENT
  Sex: Male
  Weight: 68 kg

DRUGS (3)
  1. CIMZIA [Suspect]
     Indication: RHEUMATOID ARTHRITIS
     Dosage: (400 MG 1X/2 WEEKS SUBCUTANEOUS)
     Route: 058
     Dates: start: 20110210
  2. METHOTREXATE [Concomitant]
  3. PREDNISONE [Concomitant]

REACTIONS (5)
  - NAUSEA [None]
  - THROAT TIGHTNESS [None]
  - FEELING ABNORMAL [None]
  - DYSPEPSIA [None]
  - HYPOAESTHESIA [None]
